FAERS Safety Report 15328512 (Version 1)
Quarter: 2018Q4

REPORT INFORMATION
  Report Type: Spontaneous
  Country: DK (occurrence: DK)
  Receive Date: 20180829
  Receipt Date: 20180829
  Transmission Date: 20190204
  Serious: Yes (Hospitalization)
  Sender: FDA-Public Use
  Company Number: DK-TEVA-2018-DK-949150

PATIENT
  Age: 71 Year
  Sex: Female

DRUGS (2)
  1. MONOPROST [Concomitant]
     Active Substance: LATANOPROST
     Indication: GLAUCOMA
     Dosage: 1 GTT DAILY;
     Route: 050
     Dates: start: 20160121
  2. DICLOXACILLIN ^ACTAVIS^ [Suspect]
     Active Substance: DICLOXACILLIN
     Indication: ERYSIPELAS
     Dosage: 4000 MILLIGRAM DAILY;
     Route: 048
     Dates: start: 20180724, end: 20180730

REACTIONS (5)
  - Renal impairment [Recovering/Resolving]
  - Eosinophilia [Unknown]
  - Blood creatinine increased [Recovering/Resolving]
  - Tubulointerstitial nephritis [Recovering/Resolving]
  - Acute kidney injury [Recovering/Resolving]

NARRATIVE: CASE EVENT DATE: 2018
